FAERS Safety Report 20471207 (Version 4)
Quarter: 2022Q2

REPORT INFORMATION
  Report Type: Spontaneous
  Country: JP (occurrence: JP)
  Receive Date: 20220214
  Receipt Date: 20220405
  Transmission Date: 20220721
  Serious: Yes (Other)
  Sender: FDA-Public Use
  Company Number: JP-MSD-M2022-05605

PATIENT
  Age: 8 Decade
  Sex: Female

DRUGS (5)
  1. KEYTRUDA [Suspect]
     Active Substance: PEMBROLIZUMAB
     Indication: Endometrial cancer recurrent
     Dosage: 200 MILLIGRAM, Q3W
     Route: 041
     Dates: start: 20220106, end: 20220126
  2. KEYTRUDA [Suspect]
     Active Substance: PEMBROLIZUMAB
     Dosage: 200 MILLIGRAM, Q3W
     Route: 041
     Dates: start: 202203
  3. LENVATINIB MESYLATE [Suspect]
     Active Substance: LENVATINIB MESYLATE
     Indication: Endometrial cancer recurrent
     Dosage: 20 MILLIGRAM, QD
     Route: 048
     Dates: start: 20220106, end: 20220203
  4. LENVATINIB MESYLATE [Suspect]
     Active Substance: LENVATINIB MESYLATE
     Dosage: UNK
     Route: 048
     Dates: start: 2022, end: 2022
  5. LENVATINIB MESYLATE [Suspect]
     Active Substance: LENVATINIB MESYLATE
     Dosage: 10 MILLIGRAM, QD
     Route: 048
     Dates: start: 202203

REACTIONS (5)
  - Angina pectoris [Not Recovered/Not Resolved]
  - Immune-mediated hypothyroidism [Recovered/Resolved]
  - Blood bilirubin increased [Not Recovered/Not Resolved]
  - Hypertension [Recovering/Resolving]
  - Platelet count decreased [Recovering/Resolving]

NARRATIVE: CASE EVENT DATE: 20220101
